FAERS Safety Report 8352423-6 (Version None)
Quarter: 2012Q2

REPORT INFORMATION
  Report Type: 
  Country: None (occurrence: None)
  Receive Date: 20120511
  Receipt Date: 20120504
  Transmission Date: 20120825
  Serious: Yes (Hospitalization, Other)
  Sender: FDA-Public Use
  Company Number: PHFR2012GB000957

PATIENT
  Sex: Male

DRUGS (1)
  1. CLOZARIL [Suspect]
     Indication: SCHIZOPHRENIA
     Route: 048
     Dates: start: 20110401

REACTIONS (7)
  - MALAISE [None]
  - NEUTROPHIL COUNT INCREASED [None]
  - STARVATION [None]
  - LEUKOCYTOSIS [None]
  - DELUSION [None]
  - INFECTION [None]
  - PARANOIA [None]
